FAERS Safety Report 20010333 (Version 1)
Quarter: 2021Q4

REPORT INFORMATION
  Report Type: Spontaneous
  Country: SK (occurrence: SK)
  Receive Date: 20211029
  Receipt Date: 20211029
  Transmission Date: 20220304
  Serious: Yes (Other)
  Sender: FDA-Public Use
  Company Number: SK-JNJFOC-20211046269

PATIENT

DRUGS (2)
  1. IMBRUVICA [Suspect]
     Active Substance: IBRUTINIB
     Indication: Chronic lymphocytic leukaemia
     Route: 048
     Dates: start: 201601
  2. VENETOCLAX [Suspect]
     Active Substance: VENETOCLAX
     Indication: Chronic lymphocytic leukaemia
     Route: 065
     Dates: start: 201805

REACTIONS (18)
  - Neutropenia [Unknown]
  - Thrombocytopenia [Unknown]
  - Basal cell carcinoma [Unknown]
  - Pneumonia [Unknown]
  - Haemorrhage [Unknown]
  - Atrial fibrillation [Unknown]
  - Upper respiratory tract infection [Unknown]
  - Urinary tract infection [Unknown]
  - Rhinitis [Unknown]
  - Hyperglycaemia [Unknown]
  - Hypertension [Unknown]
  - Arthralgia [Unknown]
  - Arthritis [Unknown]
  - Rash [Unknown]
  - Diarrhoea [Unknown]
  - Colitis [Unknown]
  - Muscle spasms [Unknown]
  - Liver disorder [Unknown]
